FAERS Safety Report 8526946 (Version 7)
Quarter: 2013Q4

REPORT INFORMATION
  Report Type: Spontaneous
  Country: IE (occurrence: IE)
  Receive Date: 20120411
  Receipt Date: 20131111
  Transmission Date: 20140711
  Serious: Yes (Hospitalization)
  Sender: FDA-Public Use
  Company Number: IE-009507513-2011SP057065

PATIENT
  Age: 44 Year
  Sex: Female

DRUGS (5)
  1. SYCREST [Suspect]
     Dosage: 10 MG, BID
     Route: 060
     Dates: start: 20111115
  2. PRIADEL [Concomitant]
     Dosage: UPDATE (14MAR2012):
     Route: 065
  3. LAMICTAL [Concomitant]
     Dosage: UPDATE (14MAR2012):
     Route: 065
  4. ZOTON [Concomitant]
     Dosage: UPDATE (14MAR2012):
     Route: 065
  5. RISPERIDONE [Concomitant]
     Dosage: MERGED ACTIVITY FROM CASE 2012SP013234 WHICH HAS BEEN LOGICALLY DELETED FROM THE DATABASE
     Route: 065

REACTIONS (8)
  - Disease recurrence [Recovering/Resolving]
  - Nausea [Not Recovered/Not Resolved]
  - Treatment noncompliance [Not Recovered/Not Resolved]
  - Hypoaesthesia [Not Recovered/Not Resolved]
  - Paraesthesia [Not Recovered/Not Resolved]
  - Incorrect route of drug administration [Not Recovered/Not Resolved]
  - Dysgeusia [Not Recovered/Not Resolved]
  - Hypoaesthesia oral [Not Recovered/Not Resolved]
